APPROVED DRUG PRODUCT: TAZTIA XT
Active Ingredient: DILTIAZEM HYDROCHLORIDE
Strength: 300MG
Dosage Form/Route: CAPSULE, EXTENDED RELEASE;ORAL
Application: A075401 | Product #004
Applicant: ACTAVIS LABORATORIES FL INC
Approved: Apr 10, 2003 | RLD: No | RS: No | Type: DISCN